FAERS Safety Report 15659845 (Version 1)
Quarter: 2018Q4

REPORT INFORMATION
  Report Type: Spontaneous
  Country: US (occurrence: US)
  Receive Date: 20181127
  Receipt Date: 20181127
  Transmission Date: 20190205
  Serious: No
  Sender: FDA-Public Use
  Company Number: US-BIOGEN-2018BI00649442

PATIENT
  Sex: Female

DRUGS (1)
  1. TECFIDERA [Suspect]
     Active Substance: DIMETHYL FUMARATE
     Indication: MULTIPLE SCLEROSIS
     Route: 048
     Dates: start: 20180926, end: 20181108

REACTIONS (4)
  - Yellow skin [Recovered/Resolved]
  - Chromaturia [Recovered/Resolved]
  - Ocular icterus [Unknown]
  - Hepatic enzyme increased [Unknown]
